FAERS Safety Report 8045443-2 (Version None)
Quarter: 2012Q1

REPORT INFORMATION
  Report Type: 
  Country: None (occurrence: None)
  Receive Date: 20120113
  Receipt Date: 20120105
  Transmission Date: 20120608
  Serious: Yes (Other)
  Sender: FDA-Public Use
  Company Number: US-ALEXION-A201200013

PATIENT
  Sex: Male

DRUGS (8)
  1. PREDNISONE [Concomitant]
     Dosage: 10 MG, UNK
  2. LANTUS [Concomitant]
     Dosage: UNK
  3. IRON W/FOLIC ACID [Concomitant]
     Dosage: UNK
  4. PRILOSEC [Concomitant]
     Dosage: 40 MG, UNK
  5. DRISDOL [Concomitant]
     Dosage: 5000 IU, UNK
  6. SOLIRIS [Suspect]
     Indication: PAROXYSMAL NOCTURNAL HAEMOGLOBINURIA
     Dosage: 900 MG, Q2W
     Route: 042
     Dates: start: 20070831
  7. RESTORIL [Concomitant]
     Dosage: 30 MG, UNK
  8. CARTIA XT [Concomitant]
     Dosage: 180 MG, UNK

REACTIONS (1)
  - PANCREATIC MASS [None]
